FAERS Safety Report 5589266-2 (Version None)
Quarter: 2008Q1

REPORT INFORMATION
  Report Type: 
  Country: None (occurrence: None)
  Receive Date: 20080114
  Receipt Date: 20080104
  Transmission Date: 20080703
  Serious: Yes (Hospitalization)
  Sender: FDA-Public Use
  Company Number: PHRM2008FR00495

PATIENT
  Age: 38 Year
  Sex: Female

DRUGS (5)
  1. LAMISIL [Suspect]
     Indication: FUNGAL INFECTION
     Dosage: 250 MG, QD
     Route: 048
     Dates: start: 20071101, end: 20071124
  2. LEVOTHYROX [Concomitant]
     Indication: HYPOTHYROIDISM
     Dosage: 75 MG/D
     Route: 065
  3. IBUPROFEN [Concomitant]
     Dosage: 80 MG, TID
     Dates: start: 20071116, end: 20071121
  4. DOLIPRANE [Concomitant]
     Dosage: 4 G/D
     Dates: start: 20071116, end: 20071121
  5. PROPOFAN [Concomitant]
     Dosage: 4 DF/D
     Dates: end: 20071124

REACTIONS (16)
  - ALANINE AMINOTRANSFERASE INCREASED [None]
  - ASPARTATE AMINOTRANSFERASE INCREASED [None]
  - ASTHENIA [None]
  - BLOOD ALKALINE PHOSPHATASE INCREASED [None]
  - BLOOD BILIRUBIN INCREASED [None]
  - CYTOLYTIC HEPATITIS [None]
  - CYTOMEGALOVIRUS HEPATITIS [None]
  - CYTOMEGALOVIRUS INFECTION [None]
  - DIZZINESS [None]
  - GAMMA-GLUTAMYLTRANSFERASE INCREASED [None]
  - HEADACHE [None]
  - LEUKOCYTOSIS [None]
  - LYMPHOCYTOSIS [None]
  - NAUSEA [None]
  - PYREXIA [None]
  - SPLENOMEGALY [None]
